FAERS Safety Report 22340015 (Version 1)
Quarter: 2023Q2

REPORT INFORMATION
  Report Type: Spontaneous
  Country: CA (occurrence: CA)
  Receive Date: 20230518
  Receipt Date: 20230518
  Transmission Date: 20230721
  Serious: Yes (Death, Other)
  Sender: FDA-Public Use
  Company Number: CA-SAMSUNG BIOEPIS-SB-2023-13110

PATIENT
  Age: 86 Year
  Sex: Female

DRUGS (1)
  1. INFLIXIMAB [Suspect]
     Active Substance: INFLIXIMAB
     Indication: Product used for unknown indication
     Route: 042

REACTIONS (6)
  - Asthenia [Fatal]
  - Decreased appetite [Fatal]
  - Dehydration [Fatal]
  - Dementia [Fatal]
  - Fatigue [Fatal]
  - Hypersomnia [Fatal]
